FAERS Safety Report 8273578-8 (Version None)
Quarter: 2012Q2

REPORT INFORMATION
  Report Type: 
  Country: None (occurrence: None)
  Receive Date: 20120409
  Receipt Date: 20120409
  Transmission Date: 20120825
  Serious: Yes (Hospitalization, Other)
  Sender: FDA-Public Use
  Company Number: None

PATIENT
  Sex: Female

DRUGS (1)
  1. FORTEO [Suspect]
     Indication: OSTEOPOROSIS
     Dosage: 20MG DAILY SUBCUTANEOUSLY
     Route: 058

REACTIONS (4)
  - NAUSEA [None]
  - GAIT DISTURBANCE [None]
  - FALL [None]
  - ASTHENIA [None]
